FAERS Safety Report 7316495-X (Version None)
Quarter: 2011Q1

REPORT INFORMATION
  Report Type: 
  Country: None (occurrence: None)
  Receive Date: 20110226
  Receipt Date: 20110131
  Transmission Date: 20110831
  Serious: Yes (Death, Hospitalization)
  Sender: FDA-Public Use
  Company Number: US-ALLERGAN-1001760US

PATIENT
  Age: 32 Year
  Sex: Female

DRUGS (5)
  1. ZANAFLEX [Concomitant]
     Dosage: 4 MG, TID
     Route: 048
  2. CELEBREX [Concomitant]
     Dosage: 200 MG, QD
     Route: 048
  3. BACLOFEN [Concomitant]
     Dosage: 20 MG, QID
     Route: 048
  4. BOTOXA? [Suspect]
     Indication: CEREBRAL PALSY
     Dosage: UNK
     Route: 030
     Dates: start: 20031001, end: 20031001
  5. BOTOXA? [Suspect]
     Dosage: UNK
     Route: 030
     Dates: start: 20050101, end: 20050101

REACTIONS (3)
  - PETECHIAE [None]
  - ORGAN FAILURE [None]
  - WEIGHT DECREASED [None]
